FAERS Safety Report 4855219-2 (Version None)
Quarter: 2005Q4

REPORT INFORMATION
  Report Type: 
  Country: None (occurrence: None)
  Receive Date: 20051214
  Receipt Date: 20051130
  Transmission Date: 20060501
  Serious: Yes (Other)
  Sender: FDA-Public Use
  Company Number: USA0511112606

PATIENT
  Age: 46 Year
  Sex: Male
  Weight: 49 kg

DRUGS (9)
  1. CYMBALTA [Suspect]
     Indication: DEPRESSION
     Dosage: 120
     Dates: start: 20050303, end: 20050905
  2. ZYPREXA [Suspect]
     Dosage: 2.5
  3. PROZAC [Suspect]
     Indication: DEPRESSION
     Dates: end: 20050407
  4. SYNTHROID [Concomitant]
  5. PREVACID [Concomitant]
  6. COLACE (DOCUSATE SODIUM) [Concomitant]
  7. ATIVAN [Concomitant]
  8. XANAX /USA/ (ALPRAZOLAM) [Concomitant]
  9. NEXIUM [Concomitant]

REACTIONS (5)
  - ALANINE AMINOTRANSFERASE INCREASED [None]
  - ASPARTATE AMINOTRANSFERASE INCREASED [None]
  - BLOOD ALKALINE PHOSPHATASE INCREASED [None]
  - DRUG INTERACTION POTENTIATION [None]
  - GAMMA-GLUTAMYLTRANSFERASE INCREASED [None]
